FAERS Safety Report 8473792 (Version 3)
Quarter: 2014Q3

REPORT INFORMATION
  Report Type: Spontaneous
  Country: DE (occurrence: SE)
  Receive Date: 20120323
  Receipt Date: 20140728
  Transmission Date: 20150326
  Serious: Yes (Other)
  Sender: FDA-Public Use
  Company Number: DE-RANBAXY-2012US-54150

PATIENT
  Sex: Female

DRUGS (1)
  1. ONDANSETRON [Suspect]
     Active Substance: ONDANSETRON
     Indication: PRODUCT USED FOR UNKNOWN INDICATION
     Dosage: UNK
     Route: 065

REACTIONS (3)
  - Off label use [Unknown]
  - Exposure during pregnancy [Recovered/Resolved]
  - Premature baby [Recovered/Resolved]
